FAERS Safety Report 21355882 (Version 1)
Quarter: 2022Q3

REPORT INFORMATION
  Report Type: Spontaneous
  Country: US (occurrence: US)
  Receive Date: 20220920
  Receipt Date: 20220920
  Transmission Date: 20221026
  Serious: Yes (Death, Life-Threatening, Hospitalization, Other)
  Sender: FDA-Public Use
  Company Number: US-HORIZON THERAPEUTICS-HZN-2022-007154

PATIENT

DRUGS (6)
  1. RAYOS [Suspect]
     Active Substance: PREDNISONE
     Indication: Kidney transplant rejection
     Route: 065
  2. THYMOGLOBULIN [Suspect]
     Active Substance: LAPINE T-LYMPHOCYTE IMMUNE GLOBULIN
     Indication: Immunosuppressant drug therapy
     Dosage: 3 DOSES (1.5 MG/KG) (4.5 MG/KG TOTAL))
     Route: 065
  3. MYCOPHENOLATE MOFETIL [Suspect]
     Active Substance: MYCOPHENOLATE MOFETIL
     Indication: Immunosuppressant drug therapy
     Dosage: 1000 MG, BID (EVERY 12 HOUR)
     Route: 048
  4. TACROLIMUS [Suspect]
     Active Substance: TACROLIMUS
     Indication: Immunosuppressant drug therapy
     Dosage: 8-10 NG/M
     Route: 065
  5. METHYLPREDNISOLONE [Suspect]
     Active Substance: METHYLPREDNISOLONE
     Indication: Kidney transplant rejection
     Dosage: 250 MG, EVERY 1 DAY
     Route: 065
  6. RITUXIMAB [Suspect]
     Active Substance: RITUXIMAB
     Indication: Disease recurrence
     Dosage: 375 MG/M2
     Route: 065

REACTIONS (3)
  - Adenoviral hepatitis [Fatal]
  - Acute hepatic failure [Fatal]
  - Acute kidney injury [Fatal]
